FAERS Safety Report 8006162-1 (Version None)
Quarter: 2011Q4

REPORT INFORMATION
  Report Type: 
  Country: None (occurrence: None)
  Receive Date: 20111226
  Receipt Date: 20111219
  Transmission Date: 20120403
  Serious: Yes (Disabling)
  Sender: FDA-Public Use
  Company Number: FR-BRISTOL-MYERS SQUIBB COMPANY-16311136

PATIENT
  Age: 59 Year
  Sex: Male

DRUGS (8)
  1. SOLU-MEDROL [Concomitant]
     Indication: PREMEDICATION
     Dates: start: 20110630, end: 20110630
  2. ZOFRAN [Concomitant]
     Indication: PREMEDICATION
     Dates: start: 20110630, end: 20110701
  3. SOLUDECADRON [Concomitant]
     Indication: PREMEDICATION
     Dates: start: 20110701, end: 20110701
  4. ERBITUX [Suspect]
     Indication: NEOPLASM MALIGNANT
     Route: 042
     Dates: start: 20110630, end: 20110630
  5. MANNITOL [Concomitant]
     Dates: start: 20110701, end: 20110701
  6. CISPLATIN [Concomitant]
     Route: 042
     Dates: start: 20110701
  7. POLARAMINE [Concomitant]
     Indication: PREMEDICATION
     Dates: start: 20110630, end: 20110630
  8. FLUOROURACIL [Concomitant]
     Dosage: 8000MG WITHIN 5 DAYS
     Dates: start: 20110701

REACTIONS (2)
  - DERMATITIS ACNEIFORM [None]
  - SKIN NECROSIS [None]
